FAERS Safety Report 20158117 (Version 1)
Quarter: 2021Q4

REPORT INFORMATION
  Report Type: Spontaneous
  Country: US (occurrence: US)
  Receive Date: 20211207
  Receipt Date: 20211207
  Transmission Date: 20220303
  Serious: No
  Sender: FDA-Public Use
  Company Number: US-SA-SAC20211130000905

PATIENT
  Sex: Male
  Weight: 134.2 kg

DRUGS (7)
  1. DUPIXENT [Suspect]
     Active Substance: DUPILUMAB
     Indication: Dermatitis atopic
     Dosage: 300MG, QOW
     Route: 058
     Dates: start: 2018
  2. DESCOVY [Concomitant]
     Active Substance: EMTRICITABINE\TENOFOVIR ALAFENAMIDE FUMARATE
  3. OMEPRAZOLE [Concomitant]
     Active Substance: OMEPRAZOLE
  4. HYDROCHLOROTHIAZIDE [Concomitant]
     Active Substance: HYDROCHLOROTHIAZIDE
  5. AMLODIPINE BESYLATE [Concomitant]
     Active Substance: AMLODIPINE BESYLATE
  6. PREDNISONE [Concomitant]
     Active Substance: PREDNISONE
     Indication: Dermatitis atopic
  7. ALBUTEROL SULFATE [Concomitant]
     Active Substance: ALBUTEROL SULFATE

REACTIONS (4)
  - Eczema [Unknown]
  - Skin exfoliation [Unknown]
  - Skin fissures [Unknown]
  - Conjunctivitis [Recovered/Resolved]

NARRATIVE: CASE EVENT DATE: 20200101
